FAERS Safety Report 8347529-1 (Version None)
Quarter: 2012Q2

REPORT INFORMATION
  Report Type: 
  Country: None (occurrence: None)
  Receive Date: 20120509
  Receipt Date: 20120427
  Transmission Date: 20120825
  Serious: No
  Sender: FDA-Public Use
  Company Number: US-BAYER-2012-044158

PATIENT

DRUGS (2)
  1. NAPROXEN SODIUM [Suspect]
     Dosage: 2 DF, UNK
     Route: 048
  2. IBUPROFEN (ADVIL) [Concomitant]

REACTIONS (1)
  - FEELING ABNORMAL [None]
